FAERS Safety Report 5546779-7 (Version None)
Quarter: 2007Q4

REPORT INFORMATION
  Report Type: 
  Country: None (occurrence: None)
  Receive Date: 20071211
  Receipt Date: 20071130
  Transmission Date: 20080405
  Serious: Yes (Hospitalization)
  Sender: FDA-Public Use
  Company Number: FR-ROCHE-534607

PATIENT
  Age: 37 Year
  Sex: Female

DRUGS (8)
  1. PEGASYS [Suspect]
     Indication: CHRONIC HEPATITIS
     Dosage: FORM: INJECTABLE SOLUTION
     Route: 058
     Dates: start: 20070507
  2. RIVOTRIL [Suspect]
     Indication: DRUG USE FOR UNKNOWN INDICATION
     Route: 048
     Dates: start: 20061016
  3. ATARAX [Suspect]
     Indication: DRUG USE FOR UNKNOWN INDICATION
     Route: 048
     Dates: start: 20070123
  4. MOGADON [Suspect]
     Indication: DRUG USE FOR UNKNOWN INDICATION
     Route: 048
     Dates: start: 20061016
  5. COPEGUS [Concomitant]
     Indication: CHRONIC HEPATITIS
  6. METHADONE [Concomitant]
     Dosage: DRUG- METHADONE AP-HP
  7. TRILEPTAL [Concomitant]
  8. TERCIAN [Concomitant]

REACTIONS (1)
  - DELIRIUM [None]
